FAERS Safety Report 25834949 (Version 1)
Quarter: 2025Q3

REPORT INFORMATION
  Report Type: Spontaneous
  Country: IL (occurrence: IL)
  Receive Date: 20250923
  Receipt Date: 20250923
  Transmission Date: 20251021
  Serious: Yes (Other)
  Sender: ABBVIE
  Company Number: IL-ABBVIE-6470111

PATIENT
  Age: 88 Year
  Sex: Female

DRUGS (2)
  1. VENCLEXTA [Suspect]
     Active Substance: VENETOCLAX
     Indication: Chronic lymphocytic leukaemia
     Route: 048
     Dates: end: 2022
  2. GAZYVA [Suspect]
     Active Substance: OBINUTUZUMAB
     Indication: Chronic lymphocytic leukaemia
     Route: 065
     Dates: end: 2022

REACTIONS (5)
  - B-cell small lymphocytic lymphoma [Unknown]
  - Abdominal mass [Unknown]
  - Chronic lymphocytic leukaemia recurrent [Unknown]
  - Lymphadenopathy [Unknown]
  - Heavy chain disease [Unknown]
